FAERS Safety Report 11153383 (Version 2)
Quarter: 2015Q2

REPORT INFORMATION
  Report Type: Report from Study
  Country: BR (occurrence: BR)
  Receive Date: 20150602
  Receipt Date: 20150613
  Transmission Date: 20150821
  Serious: Yes (Hospitalization)
  Sender: FDA-Public Use
  Company Number: PHHY2015BR062612

PATIENT
  Age: 86 Year
  Sex: Female
  Weight: 54 kg

DRUGS (6)
  1. CALCIUM [Concomitant]
     Active Substance: CALCIUM
     Indication: OSTEOPENIA
     Dosage: 1 DF, QD
     Route: 048
  2. OMEPRAZOLE. [Concomitant]
     Active Substance: OMEPRAZOLE
     Indication: GASTROINTESTINAL DISORDER
     Dosage: 1 DF, QD
     Route: 048
     Dates: start: 201406
  3. CALCIUM + VITAMIN D                /00944201/ [Concomitant]
     Active Substance: CALCIUM\VITAMIN D
     Indication: OSTEOPENIA
     Dosage: UNK
     Route: 065
  4. ACLASTA [Suspect]
     Active Substance: ZOLEDRONIC ACID
     Indication: BONE DISORDER
     Dosage: 5 MG, UNK
     Route: 042
     Dates: start: 201405
  5. DAFLON (DIOSMIN/HESPERIDIN) [Concomitant]
     Active Substance: DIOSMIN\HESPERIDIN
     Indication: PROPHYLAXIS
     Dosage: 1000 MG, QD
     Route: 048
     Dates: start: 201409
  6. BICONCOR [Concomitant]
     Indication: HYPERTENSION
     Dosage: 2.5 MG, QD (20 YEARS AGO)
     Route: 048

REACTIONS (8)
  - Decubitus ulcer [Recovering/Resolving]
  - Contusion [Unknown]
  - Wound [Unknown]
  - Thrombosis [Recovered/Resolved]
  - Eschar [Unknown]
  - Infection [Unknown]
  - Gait disturbance [Recovering/Resolving]
  - Poor peripheral circulation [Unknown]

NARRATIVE: CASE EVENT DATE: 201409
